FAERS Safety Report 8904757 (Version 1)
Quarter: 2012Q4

REPORT INFORMATION
  Report Type: 
  Country: IT (occurrence: IT)
  Receive Date: 20121113
  Receipt Date: 20121113
  Transmission Date: 20130627
  Serious: Yes (Hospitalization)
  Sender: FDA-Public Use
  Company Number: IT-MYLANLABS-2012S1022859

PATIENT
  Age: 2 Year
  Sex: Male

DRUGS (2)
  1. SALBUTAMOL [Suspect]
     Indication: WHEEZING
     Dosage: 0.1mg/kg/dose
     Route: 048
  2. SALBUTAMOL [Suspect]
     Indication: WHEEZING
     Dosage: 1.5mg three times a day (0.1 mg/kg/dose)
     Route: 048

REACTIONS (1)
  - Urinary retention [Recovered/Resolved]
